FAERS Safety Report 16002418 (Version 1)
Quarter: 2019Q1

REPORT INFORMATION
  Report Type: Report from Study
  Country: KR (occurrence: KR)
  Receive Date: 20190225
  Receipt Date: 20190225
  Transmission Date: 20190418
  Serious: Yes (Death)
  Sender: FDA-Public Use
  Company Number: KR-CELLTRION INC.-2019KR018806

PATIENT

DRUGS (10)
  1. TRUXIMA [Suspect]
     Active Substance: RITUXIMAB-ABBS
     Indication: MICROSCOPIC POLYANGIITIS
     Dosage: 600 MG, 2 WEEKS
     Route: 042
     Dates: start: 20180710, end: 20180801
  2. TASNA [Concomitant]
     Indication: EPIGASTRIC DISCOMFORT
     Dosage: 1000 MG, BID
     Route: 048
     Dates: start: 20180703, end: 20180719
  3. SOLU-MEDROL [Concomitant]
     Active Substance: METHYLPREDNISOLONE SODIUM SUCCINATE
     Indication: MICROSCOPIC POLYANGIITIS
     Dosage: 31.25 MG, BID
     Route: 042
     Dates: start: 20180705, end: 20181120
  4. CURAN [Concomitant]
     Active Substance: RANITIDINE HYDROCHLORIDE
     Indication: EPIGASTRIC DISCOMFORT
     Dosage: 50 MG, TID
     Route: 042
     Dates: start: 20180705, end: 20180728
  5. BOLGRE [Concomitant]
     Indication: ANAEMIA
     Dosage: 10 ML, QD (SOLUTION)
     Route: 048
     Dates: start: 20180726, end: 20181111
  6. ULCERMIN                           /00434701/ [Concomitant]
     Indication: GASTRIC ULCER
     Dosage: 15 ML, QD
     Route: 048
     Dates: start: 20180710
  7. OLDECA [Concomitant]
     Indication: HYPERTENSION
     Dosage: 5 MG, BID
     Route: 048
     Dates: start: 20180710, end: 20180813
  8. HERBEN [Concomitant]
     Active Substance: DILTIAZEM HYDROCHLORIDE
     Indication: HYPERTENSION
     Dosage: 30 MG, QD
     Route: 048
     Dates: start: 20180706, end: 20181002
  9. ISONICOTINIC ACID HYDRAZIDE [Concomitant]
     Indication: TUBERCULOSIS
     Dosage: 300 MG, QID
     Route: 048
     Dates: start: 20180706, end: 20181002
  10. FEROBA YOU [Concomitant]
     Indication: ANAEMIA
     Dosage: 512 MG, QD
     Route: 048
     Dates: start: 20180703, end: 20180723

REACTIONS (1)
  - Pneumonia [Fatal]

NARRATIVE: CASE EVENT DATE: 20180717
